FAERS Safety Report 6406701-8 (Version None)
Quarter: 2009Q4

REPORT INFORMATION
  Report Type: 
  Country: None (occurrence: None)
  Receive Date: 20091020
  Receipt Date: 20091009
  Transmission Date: 20100525
  Serious: Yes (Other)
  Sender: FDA-Public Use
  Company Number: GB-RANBAXY-2009RR-28441

PATIENT

DRUGS (11)
  1. SIMVASTATIN [Suspect]
     Dosage: 40 MG, QD
  2. FUROSEMIDE [Concomitant]
     Dosage: 40 MG, QD
  3. ASPIRIN [Concomitant]
     Dosage: 75 MG, QD
  4. SOTALOL [Concomitant]
     Dosage: 40 MG, BID
  5. CANDESARTAN CILEXETIL [Concomitant]
     Dosage: 8 MG, QD
  6. AMLODIPINE [Concomitant]
     Dosage: 10 MG, QD
  7. CITALOPRAM HYDROBROMIDE [Concomitant]
     Dosage: 10 MG, QD
  8. OMEPRAZOLE [Concomitant]
     Dosage: 20 MG, QD
  9. CO-DYDRAMOL [Concomitant]
     Indication: PAIN
     Dosage: UNK
  10. PARACETAMOL [Concomitant]
     Indication: PAIN
     Dosage: UNK
  11. AMITRIPTYLINE HYDROCHLORIDE [Concomitant]
     Dosage: 10 MG, QD

REACTIONS (7)
  - DYSPHAGIA [None]
  - LIMB DISCOMFORT [None]
  - MUSCULAR WEAKNESS [None]
  - MUSCULOSKELETAL STIFFNESS [None]
  - PAIN [None]
  - PAIN IN EXTREMITY [None]
  - PARAESTHESIA [None]
